FAERS Safety Report 4886449-1 (Version None)
Quarter: 2006Q1

REPORT INFORMATION
  Report Type: 
  Country: None (occurrence: None)
  Receive Date: 20060120
  Receipt Date: 20051226
  Transmission Date: 20060701
  Serious: Yes (Life-Threatening, Hospitalization)
  Sender: FDA-Public Use
  Company Number: JP-BRISTOL-MYERS SQUIBB COMPANY-13229174

PATIENT
  Age: 50 Year
  Sex: Female

DRUGS (3)
  1. TAXOL [Suspect]
     Indication: UTERINE CANCER
     Route: 041
     Dates: start: 20050905, end: 20050905
  2. BRIPLATIN [Suspect]
     Indication: UTERINE CANCER
     Route: 041
     Dates: start: 20050906, end: 20050906
  3. RADIATION THERAPY [Suspect]
     Dates: start: 20041122, end: 20050131

REACTIONS (3)
  - BONE MARROW FAILURE [None]
  - SMALL INTESTINAL PERFORATION [None]
  - WHITE BLOOD CELL COUNT INCREASED [None]
